FAERS Safety Report 8840022 (Version 1)
Quarter: 2012Q4

REPORT INFORMATION
  Report Type: 
  Country: US (occurrence: US)
  Receive Date: 20121015
  Receipt Date: 20121015
  Transmission Date: 20130627
  Serious: No
  Sender: FDA-Public Use
  Company Number: US-PFIZER INC-2012252925

PATIENT
  Age: 46 Year
  Sex: Female
  Weight: 69.39 kg

DRUGS (4)
  1. ADVIL [Suspect]
     Indication: PAIN
     Dosage: 200mg, two caplets daily
     Route: 048
     Dates: start: 20121009
  2. ULTRAM [Concomitant]
     Indication: ANALGESIC THERAPY
     Dosage: 50 mg, four times a day
  3. TOPROL XL [Concomitant]
     Indication: HYPERTENSION
     Dosage: 50 mg, daily
  4. LEVOTHYROXINE [Concomitant]
     Indication: THYROID DISORDER
     Dosage: UNK

REACTIONS (3)
  - Feeling abnormal [Recovering/Resolving]
  - Gait disturbance [Recovering/Resolving]
  - Dizziness [Recovering/Resolving]
